FAERS Safety Report 21374871 (Version 1)
Quarter: 2022Q3

REPORT INFORMATION
  Report Type: Spontaneous
  Country: GB (occurrence: GB)
  Receive Date: 20220926
  Receipt Date: 20220926
  Transmission Date: 20221026
  Serious: Yes (Hospitalization)
  Sender: FDA-Public Use
  Company Number: GB-MHRA-MED-202209150924122370-JQRMB

PATIENT
  Age: 59 Year

DRUGS (1)
  1. POSACONAZOLE [Suspect]
     Active Substance: POSACONAZOLE
     Indication: Product used for unknown indication
     Dates: start: 20220514

REACTIONS (1)
  - Pneumonia [Unknown]
